FAERS Safety Report 25128971 (Version 1)
Quarter: 2025Q1

REPORT INFORMATION
  Report Type: Spontaneous
  Country: US (occurrence: None)
  Receive Date: 20250327
  Receipt Date: 20250327
  Transmission Date: 20250409
  Serious: Yes (Other)
  Sender: FDA-CTU
  Company Number: None

PATIENT
  Sex: Female

DRUGS (7)
  1. PROLIA [Suspect]
     Active Substance: DENOSUMAB
     Indication: Senile osteoporosis
     Route: 058
     Dates: start: 20220826
  2. ALEVE [Concomitant]
     Active Substance: NAPROXEN SODIUM
  3. ALLEGRE ALRG [Concomitant]
  4. CELEBREX [Concomitant]
     Active Substance: CELECOXIB
  5. COLACE [Concomitant]
     Active Substance: DOCUSATE SODIUM
  6. LIPITOR [Concomitant]
     Active Substance: ATORVASTATIN CALCIUM
  7. VITAMIN D [Concomitant]
     Active Substance: VITAMIN D NOS

REACTIONS (1)
  - Skin cancer [None]
